FAERS Safety Report 12674038 (Version 1)
Quarter: 2016Q3

REPORT INFORMATION
  Report Type: Spontaneous
  Country: US (occurrence: US)
  Receive Date: 20160822
  Receipt Date: 20160822
  Transmission Date: 20161109
  Serious: Yes (Hospitalization)
  Sender: FDA-Public Use
  Company Number: US-SA-2016SA150168

PATIENT
  Sex: Female

DRUGS (3)
  1. NOVOLOG [Concomitant]
     Active Substance: INSULIN ASPART
  2. FLEXPEN [Concomitant]
     Active Substance: UNSPECIFIED INGREDIENT
  3. LANTUS [Suspect]
     Active Substance: INSULIN GLARGINE
     Route: 065

REACTIONS (5)
  - Pancreatitis [Unknown]
  - Rash pruritic [Unknown]
  - Abdominal pain upper [Unknown]
  - Pancreatic enlargement [Unknown]
  - Nausea [Unknown]

NARRATIVE: CASE EVENT DATE: 201606
